FAERS Safety Report 7294590-1 (Version None)
Quarter: 2011Q1

REPORT INFORMATION
  Report Type: 
  Country: None (occurrence: None)
  Receive Date: 20110216
  Receipt Date: 20110207
  Transmission Date: 20110831
  Serious: No
  Sender: FDA-Public Use
  Company Number: US-BIOGENIDEC-2011BI004789

PATIENT
  Age: 49 Year
  Sex: Female

DRUGS (2)
  1. AVONEX [Suspect]
     Route: 030
     Dates: start: 20040101
  2. AVONEX [Suspect]
     Indication: MULTIPLE SCLEROSIS
     Route: 030

REACTIONS (9)
  - BONE PAIN [None]
  - INFLUENZA LIKE ILLNESS [None]
  - CHEST PAIN [None]
  - HYPOTONIA [None]
  - PYREXIA [None]
  - FORMICATION [None]
  - MIGRAINE [None]
  - DYSPNOEA [None]
  - VOMITING [None]
